FAERS Safety Report 9155701 (Version 1)
Quarter: 2013Q1

REPORT INFORMATION
  Report Type: Report from Study
  Country: BR (occurrence: BR)
  Receive Date: 20130311
  Receipt Date: 20130311
  Transmission Date: 20140127
  Serious: Yes (Death, Life-Threatening, Hospitalization)
  Sender: FDA-Public Use
  Company Number: BR-GILEAD-2010-0033749

PATIENT
  Age: 35 Year
  Sex: Male

DRUGS (9)
  1. TENOFOVIR DISOPROXIL FUMARATE [Suspect]
     Indication: HIV INFECTION
     Dosage: 300 MG, QD
     Route: 065
     Dates: start: 20101014, end: 20101114
  2. LAMIVUDINE [Suspect]
     Indication: HIV INFECTION
     Dosage: 300 MG, QD
     Route: 065
     Dates: start: 20101010, end: 20101114
  3. EFAVIRENZ [Suspect]
     Indication: HIV INFECTION
     Dosage: 600 MG, QD
     Route: 065
     Dates: start: 20101014, end: 20101114
  4. RIFAMPIN [Suspect]
     Indication: TUBERCULOSIS
     Dosage: 600 MG, QD
     Route: 065
     Dates: start: 20100821, end: 20101114
  5. ISONIAZID [Suspect]
     Indication: TUBERCULOSIS
     Dosage: 400 MG, QD
     Route: 065
     Dates: start: 20100821, end: 20101114
  6. PYRAZINAMIDE [Suspect]
     Indication: TUBERCULOSIS
     Dosage: 2000 MG, QD
     Route: 065
     Dates: start: 20100821, end: 20101030
  7. ETHAMBUTOL [Suspect]
     Indication: TUBERCULOSIS
     Dosage: 1200 MG, QD
     Route: 065
     Dates: start: 20100821, end: 20101114
  8. DICLOFENAC SODIUM [Suspect]
     Indication: COSTOCHONDRITIS
     Dosage: 100 MG, QD
     Route: 065
     Dates: start: 20101103, end: 20101106
  9. KETOPROFEN [Suspect]
     Indication: COSTOCHONDRITIS
     Dosage: 100 MG, QD
     Route: 065
     Dates: start: 20101103, end: 20101103

REACTIONS (3)
  - Gastritis [Fatal]
  - Septic shock [Fatal]
  - Pneumothorax [Fatal]
